FAERS Safety Report 7284138-X (Version None)
Quarter: 2011Q1

REPORT INFORMATION
  Report Type: 
  Country: None (occurrence: None)
  Receive Date: 20110131
  Receipt Date: 20110117
  Transmission Date: 20110831
  Serious: Yes (Death, Other)
  Sender: FDA-Public Use
  Company Number: MC201100015

PATIENT
  Age: 82 Year
  Sex: Female
  Weight: 43.5 kg

DRUGS (2)
  1. ANGIOMAX [Suspect]
     Indication: PERCUTANEOUS CORONARY INTERVENTION
     Dosage: , INTRAVENOUS,   INFUSION, INTRAVENOUS
     Route: 042
     Dates: start: 20110111
  2. ANGIOMAX [Suspect]
     Indication: PERCUTANEOUS CORONARY INTERVENTION
     Dosage: , INTRAVENOUS,   INFUSION, INTRAVENOUS
     Route: 042
     Dates: start: 20110111

REACTIONS (2)
  - ANAPHYLACTIC SHOCK [None]
  - CARDIO-RESPIRATORY ARREST [None]
